FAERS Safety Report 14489928 (Version 1)
Quarter: 2018Q1

REPORT INFORMATION
  Report Type: Spontaneous
  Country: US (occurrence: US)
  Receive Date: 20180206
  Receipt Date: 20180206
  Transmission Date: 20180509
  Serious: Yes (Hospitalization)
  Sender: FDA-Public Use
  Company Number: US-UNICHEM PHARMACEUTICALS (USA) INC-UCM201802-000026

PATIENT
  Age: 54 Year
  Sex: Female

DRUGS (14)
  1. DOXAZOCIN [Suspect]
     Active Substance: DOXAZOSIN MESYLATE
  2. INSULIN [Concomitant]
     Active Substance: INSULIN NOS
     Dosage: 4 U/KG/H
  3. VASOPRESSIN. [Concomitant]
     Active Substance: VASOPRESSIN
     Indication: BLOOD PRESSURE MEASUREMENT
  4. DEXTROSE. [Concomitant]
     Active Substance: DEXTROSE
     Indication: EUGLYCAEMIC DIABETIC KETOACIDOSIS
  5. DOPAMINE [Concomitant]
     Active Substance: DOPAMINE\DOPAMINE HYDROCHLORIDE
     Indication: BLOOD PRESSURE MEASUREMENT
  6. AMLODIPINE BESYLATE 10MG TABLETS [Suspect]
     Active Substance: AMLODIPINE BESYLATE
  7. INSULIN [Concomitant]
     Active Substance: INSULIN NOS
     Dosage: 1 U/KG/H
  8. NOREPINEPHRINE. [Concomitant]
     Active Substance: NOREPINEPHRINE
     Indication: BLOOD PRESSURE MEASUREMENT
  9. DEXTROSE. [Concomitant]
     Active Substance: DEXTROSE
  10. EPINEPHRINE. [Concomitant]
     Active Substance: EPINEPHRINE
     Indication: BLOOD PRESSURE MEASUREMENT
  11. PHENYLEPHRINE [Concomitant]
     Active Substance: PHENYLEPHRINE\PHENYLEPHRINE HYDROCHLORIDE
     Indication: BLOOD PRESSURE MEASUREMENT
  12. INSULIN [Concomitant]
     Active Substance: INSULIN NOS
     Dosage: 10 U/KG/H
  13. HYDROCHLOROTHIAZIDE. [Suspect]
     Active Substance: HYDROCHLOROTHIAZIDE
  14. ATENOLOL. [Suspect]
     Active Substance: ATENOLOL

REACTIONS (3)
  - Abdominal pain [Unknown]
  - Intentional overdose [Unknown]
  - Suicide attempt [Unknown]
